FAERS Safety Report 20037518 (Version 1)
Quarter: 2021Q4

REPORT INFORMATION
  Report Type: Spontaneous
  Country: FR (occurrence: FR)
  Receive Date: 20211105
  Receipt Date: 20211105
  Transmission Date: 20220303
  Serious: Yes (Other)
  Sender: FDA-Public Use
  Company Number: FR-BAYER-2021-183685

PATIENT
  Age: 49 Year
  Sex: Female

DRUGS (1)
  1. SORAFENIB [Suspect]
     Active Substance: SORAFENIB
     Indication: Malignant melanoma
     Dosage: UNK

REACTIONS (2)
  - Cutaneous sarcoidosis [Unknown]
  - Off label use [Unknown]
